FAERS Safety Report 5537089-2 (Version None)
Quarter: 2007Q4

REPORT INFORMATION
  Report Type: 
  Country: None (occurrence: None)
  Receive Date: 20071207
  Receipt Date: 20071203
  Transmission Date: 20080405
  Serious: Yes (Death)
  Sender: FDA-Public Use
  Company Number: US-AVENTIS-200721132GDDC

PATIENT
  Age: 55 Year
  Sex: Male
  Weight: 80.29 kg

DRUGS (3)
  1. TAXOTERE [Suspect]
     Indication: PANCREATIC CARCINOMA
     Route: 042
     Dates: start: 20070129, end: 20070904
  2. GEMZAR [Suspect]
     Indication: PANCREATIC CARCINOMA
     Route: 042
     Dates: start: 20070129, end: 20070904
  3. XELODA [Suspect]
     Indication: PANCREATIC CARCINOMA
     Dates: start: 20070126, end: 20070907

REACTIONS (1)
  - MYOCARDIAL INFARCTION [None]
